FAERS Safety Report 10181248 (Version 2)
Quarter: 2014Q4

REPORT INFORMATION
  Report Type: Spontaneous
  Country: US (occurrence: US)
  Receive Date: 20140519
  Receipt Date: 20141006
  Transmission Date: 20150528
  Serious: No
  Sender: FDA-Public Use
  Company Number: US-AMGEN INC.-USASP2014031471

PATIENT
  Age: 70 Year
  Sex: Female
  Weight: 65.31 kg

DRUGS (8)
  1. PROLIA [Suspect]
     Active Substance: DENOSUMAB
     Indication: OSTEOPOROSIS POSTMENOPAUSAL
     Dosage: 60 MG, Q6MO
     Route: 058
     Dates: start: 20121120, end: 20131125
  2. ASPIRIN. [Concomitant]
     Active Substance: ASPIRIN
     Dosage: 81 MG, QD
  3. HYZAAR [Concomitant]
     Active Substance: HYDROCHLOROTHIAZIDE\LOSARTAN POTASSIUM
     Indication: HYPERTENSION
     Dosage: UNK UNK, QD
     Route: 048
  4. VITAMIN D                          /00107901/ [Concomitant]
     Active Substance: ERGOCALCIFEROL
     Route: 065
  5. NASONEX [Concomitant]
     Active Substance: MOMETASONE FUROATE
     Dosage: UNK UNK, QD
  6. FISH OIL [Concomitant]
     Active Substance: FISH OIL
     Route: 065
  7. VITAMIN B12 [Concomitant]
     Active Substance: CYANOCOBALAMIN
     Route: 065
  8. PREVACID [Concomitant]
     Active Substance: LANSOPRAZOLE
     Indication: GASTROOESOPHAGEAL REFLUX DISEASE
     Dosage: 30 MG, QD
     Route: 048

REACTIONS (11)
  - Bone pain [Recovering/Resolving]
  - Mobility decreased [Unknown]
  - Arthritis [Unknown]
  - Arthralgia [Unknown]
  - Pain in extremity [Unknown]
  - Dysstasia [Unknown]
  - Musculoskeletal pain [Unknown]
  - Muscular weakness [Unknown]
  - Back pain [Recovering/Resolving]
  - Discomfort [Unknown]
  - Sleep disorder due to a general medical condition [Unknown]

NARRATIVE: CASE EVENT DATE: 201311
